FAERS Safety Report 20897133 (Version 2)
Quarter: 2022Q2

REPORT INFORMATION
  Report Type: Spontaneous
  Country: JP (occurrence: JP)
  Receive Date: 20220531
  Receipt Date: 20220610
  Transmission Date: 20220720
  Serious: Yes (Other)
  Sender: FDA-Public Use
  Company Number: JP-BAYER-2022A076850

PATIENT
  Age: 80 Year
  Sex: Male

DRUGS (1)
  1. NUBEQA [Suspect]
     Active Substance: DAROLUTAMIDE
     Indication: Prostate cancer
     Dosage: UNK
     Dates: start: 20211111, end: 20220407

REACTIONS (2)
  - Prostate cancer [None]
  - Prostatic specific antigen increased [None]

NARRATIVE: CASE EVENT DATE: 20211111
